FAERS Safety Report 7653805 (Version 2)
Quarter: 2013Q3

REPORT INFORMATION
  Report Type: Spontaneous
  Country: US (occurrence: US)
  Receive Date: 20101102
  Receipt Date: 20130723
  Transmission Date: 20140515
  Serious: Yes (Other)
  Sender: FDA-Public Use
  Company Number: US-JNJFOC-20101006716

PATIENT
  Age: 9 Year
  Sex: Female

DRUGS (11)
  1. REMICADE [Suspect]
     Indication: CROHN^S DISEASE
     Route: 042
     Dates: start: 20100831
  2. REMICADE [Suspect]
     Indication: CROHN^S DISEASE
     Dosage: APPROXIMATELY RECEIVED A TOTAL OF 3 INFUSIONS
     Route: 042
     Dates: start: 20101016, end: 20101016
  3. ACETAMINOPHEN [Concomitant]
     Indication: PREMEDICATION
  4. SOLU MEDROL [Concomitant]
     Indication: PREMEDICATION
     Route: 042
     Dates: start: 20101018
  5. BENADRYL [Concomitant]
     Indication: PREMEDICATION
     Route: 048
     Dates: start: 20101018
  6. TYLENOL [Concomitant]
     Indication: PREMEDICATION
     Route: 048
     Dates: start: 20101018
  7. ZOFRAN [Concomitant]
     Indication: NAUSEA
     Route: 065
     Dates: start: 20101014, end: 20101028
  8. SOLU MEDROL [Concomitant]
     Indication: CROHN^S DISEASE
     Route: 065
     Dates: start: 20101014, end: 20101019
  9. NEXIUM [Concomitant]
     Indication: CROHN^S DISEASE
     Route: 065
     Dates: start: 20101016
  10. FLAGYL [Concomitant]
     Indication: CROHN^S DISEASE
     Route: 065
     Dates: start: 20101014, end: 20101020
  11. ATARAX [Concomitant]
     Route: 065
     Dates: start: 20101018, end: 20101019

REACTIONS (10)
  - Palpitations [Unknown]
  - Hypotension [Recovered/Resolved]
  - Dyspnoea [Recovered/Resolved]
  - Infusion related reaction [Unknown]
  - Tachycardia [Recovered/Resolved]
  - Vomiting [Recovered/Resolved]
  - Chest pain [Recovered/Resolved]
  - Urticaria [Recovered/Resolved]
  - Flushing [Unknown]
  - Flushing [Recovered/Resolved]
